FAERS Safety Report 5248987-1 (Version None)
Quarter: 2007Q1

REPORT INFORMATION
  Report Type: 
  Country: None (occurrence: None)
  Receive Date: 20070228
  Receipt Date: 20060509
  Transmission Date: 20070707
  Serious: No
  Sender: FDA-Public Use
  Company Number: US-GLAXOSMITHKLINE-A0603566A

PATIENT
  Age: 37 Year
  Sex: Male

DRUGS (3)
  1. VALTREX [Suspect]
     Dosage: 500MG PER DAY
     Route: 048
  2. ZOVIRAX [Suspect]
     Dosage: 400MG PER DAY
     Route: 048
     Dates: start: 20060423
  3. PROSCAR [Concomitant]

REACTIONS (4)
  - ARRHYTHMIA [None]
  - BLEPHAROSPASM [None]
  - COCCYDYNIA [None]
  - HERPES ZOSTER [None]
